FAERS Safety Report 7672986-3 (Version None)
Quarter: 2011Q3

REPORT INFORMATION
  Report Type: 
  Country: None (occurrence: None)
  Receive Date: 20110809
  Receipt Date: 20110801
  Transmission Date: 20111222
  Serious: Yes (Other)
  Sender: FDA-Public Use
  Company Number: AT-GENENTECH-322569

PATIENT

DRUGS (5)
  1. RITUXIMAB [Suspect]
     Indication: MANTLE CELL LYMPHOMA
     Dosage: 375 MG/M2, Q3W
     Route: 065
  2. DEXAMETHASONE [Suspect]
     Indication: MANTLE CELL LYMPHOMA
     Dosage: UNK
     Route: 048
  3. BORTEZOMIB [Suspect]
     Indication: MANTLE CELL LYMPHOMA
     Dosage: 1.3 MG/M2, UNK
     Route: 040
  4. DIPHENHYDRAMINE HCL [Concomitant]
     Indication: PRODUCT USED FOR UNKNOWN INDICATION
     Dosage: UNK
  5. ACETAMINOPHEN [Concomitant]
     Indication: PRODUCT USED FOR UNKNOWN INDICATION
     Dosage: UNK

REACTIONS (9)
  - CANDIDIASIS [None]
  - DIARRHOEA [None]
  - PNEUMONIA BACTERIAL [None]
  - CUTANEOUS VASCULITIS [None]
  - LEUKOPENIA [None]
  - NEUROPATHY PERIPHERAL [None]
  - HERPES ZOSTER [None]
  - HYPONATRAEMIA [None]
  - FATIGUE [None]
